FAERS Safety Report 5651157-6 (Version None)
Quarter: 2008Q1

REPORT INFORMATION
  Report Type: 
  Country: None (occurrence: None)
  Receive Date: 20080305
  Receipt Date: 20080229
  Transmission Date: 20080703
  Serious: Yes (Disabling, Other)
  Sender: FDA-Public Use
  Company Number: GB-MERCK-0710GBR00038

PATIENT
  Sex: Male

DRUGS (2)
  1. ZOCOR [Suspect]
     Indication: HYPERCHOLESTEROLAEMIA
     Route: 048
     Dates: end: 20070911
  2. ERYTHROMYCIN [Concomitant]
     Indication: WOUND INFECTION
     Route: 048
     Dates: start: 20070820, end: 20070911

REACTIONS (3)
  - ASPARTATE AMINOTRANSFERASE INCREASED [None]
  - RHABDOMYOLYSIS [None]
  - TROPONIN T INCREASED [None]
